FAERS Safety Report 5713017-1 (Version None)
Quarter: 2008Q2

REPORT INFORMATION
  Report Type: 
  Country: None (occurrence: None)
  Receive Date: 20080422
  Receipt Date: 20080410
  Transmission Date: 20081010
  Serious: Yes (Hospitalization)
  Sender: FDA-Public Use
  Company Number: IT-ROCHE-557924

PATIENT
  Sex: Female

DRUGS (5)
  1. ROCEPHIN [Suspect]
     Indication: PNEUMONIA
     Dosage: FORM: VIAL
     Route: 030
     Dates: start: 20080311, end: 20080311
  2. AMOXICILLIN AND CLAVULANATE POTASSIUM [Suspect]
     Indication: PNEUMONIA
     Route: 048
     Dates: start: 20080307, end: 20080310
  3. AMOXICILLIN AND CLAVULANATE POTASSIUM [Suspect]
     Route: 048
     Dates: start: 20080307, end: 20080310
  4. ZESTORETIC [Concomitant]
     Dosage: STRENGTH: 20+12.5 MG
     Route: 050
  5. ZESTORETIC [Concomitant]
     Dosage: STRENGTH: 20+12.5 MG
     Route: 050

REACTIONS (1)
  - HEPATITIS ACUTE [None]
